FAERS Safety Report 21871925 (Version 4)
Quarter: 2023Q2

REPORT INFORMATION
  Report Type: Spontaneous
  Country: US (occurrence: US)
  Receive Date: 20230117
  Receipt Date: 20230405
  Transmission Date: 20230722
  Serious: No
  Sender: FDA-Public Use
  Company Number: US-PFIZER INC-PV202300006003

PATIENT
  Age: 73 Year
  Sex: Female
  Weight: 65.6 kg

DRUGS (1)
  1. IBRANCE [Suspect]
     Active Substance: PALBOCICLIB
     Dosage: 125 MG, CYCLIC, (21 DAYS ON, 7 DAYS OFF)
     Route: 048

REACTIONS (4)
  - Platelet count decreased [Unknown]
  - Malaise [Unknown]
  - Neoplasm progression [Not Recovered/Not Resolved]
  - Weight decreased [Unknown]
